FAERS Safety Report 7043000-8 (Version None)
Quarter: 2010Q4

REPORT INFORMATION
  Report Type: 
  Country: None (occurrence: None)
  Receive Date: 20101007
  Receipt Date: 20100903
  Transmission Date: 20110411
  Serious: Yes (Hospitalization)
  Sender: FDA-Public Use
  Company Number: 20109342

PATIENT
  Sex: Female

DRUGS (4)
  1. LIORESAL [Suspect]
     Indication: MUSCLE SPASTICITY
     Dosage: DAILY, INTRATHECAL
     Route: 037
  2. HYDROMORPHONE HCL [Concomitant]
  3. CLONIDINE [Concomitant]
  4. MARCAINE [Concomitant]

REACTIONS (4)
  - CONVULSION [None]
  - DIAPHRAGMATIC DISORDER [None]
  - MEDICATION ERROR [None]
  - SELF-INJURIOUS IDEATION [None]
